FAERS Safety Report 19182847 (Version 1)
Quarter: 2021Q2

REPORT INFORMATION
  Report Type: Spontaneous
  Country: PT (occurrence: PT)
  Receive Date: 20210427
  Receipt Date: 20210427
  Transmission Date: 20210717
  Serious: Yes (Other)
  Sender: FDA-Public Use
  Company Number: PT-LUPIN PHARMACEUTICALS INC.-2021-05206

PATIENT
  Age: 42 Year
  Sex: Female

DRUGS (10)
  1. MESALAZINE [Concomitant]
     Active Substance: MESALAMINE
     Dosage: UNK
     Route: 061
  2. MEROPENEM. [Concomitant]
     Active Substance: MEROPENEM
     Indication: SUPERINFECTION BACTERIAL
     Dosage: 500 MILLIGRAM, TID
     Dates: start: 2019
  3. HYDROCORTISONE. [Suspect]
     Active Substance: HYDROCORTISONE
     Indication: PYODERMA GANGRENOSUM
     Dosage: 400 MILLIGRAM, QD (4?DAY INDUCTION)
     Route: 065
     Dates: start: 2019
  4. ADALIMUMAB [Suspect]
     Active Substance: ADALIMUMAB
     Dosage: 40 MILLIGRAM (MAINTENANCE THERAPY)
     Route: 065
     Dates: start: 2018
  5. MESALAZINE [Concomitant]
     Active Substance: MESALAMINE
     Indication: COLITIS ULCERATIVE
     Dosage: 3 GRAM, QD (AS MAINTENANCE TREATMENT)
     Route: 048
  6. ADALIMUMAB [Suspect]
     Active Substance: ADALIMUMAB
     Indication: PYODERMA GANGRENOSUM
     Dosage: 80 MILLIGRAM (WEEK 0 AND 2 (INDUCTION PHASE))
     Route: 065
     Dates: start: 2018
  7. PREDNISOLONE. [Suspect]
     Active Substance: PREDNISOLONE
     Indication: PYODERMA GANGRENOSUM
     Dosage: 60 MILLIGRAM, QD (0.75 MG/KG/DAY)
     Route: 048
     Dates: start: 2018
  8. INFLIXIMAB [Suspect]
     Active Substance: INFLIXIMAB
     Dosage: 10 MILLIGRAM/KILOGRAM (MAINTENANCE THERAPY)
     Route: 065
     Dates: start: 2018
  9. INFLIXIMAB [Suspect]
     Active Substance: INFLIXIMAB
     Indication: PYODERMA GANGRENOSUM
     Dosage: WEEK 0, 2 AND 6 (INDUCTION PHASE)
     Route: 065
     Dates: start: 2018
  10. MESALAZINE [Concomitant]
     Active Substance: MESALAMINE
     Indication: COLITIS ULCERATIVE
     Dosage: 4.5 GRAM, QD
     Route: 048

REACTIONS (1)
  - Drug ineffective [Unknown]
